FAERS Safety Report 6048021-X (Version None)
Quarter: 2009Q1

REPORT INFORMATION
  Report Type: 
  Country: None (occurrence: None)
  Receive Date: 20090123
  Receipt Date: 20090113
  Transmission Date: 20090719
  Serious: Yes (Hospitalization)
  Sender: FDA-Public Use
  Company Number: FR-AVENTIS-200814133FR

PATIENT
  Age: 45 Year
  Sex: Male
  Weight: 66 kg

DRUGS (3)
  1. NASACORT [Suspect]
     Route: 045
     Dates: start: 20071206
  2. SEROPLEX [Concomitant]
     Indication: DEPRESSION
     Route: 048
     Dates: start: 20061201
  3. PRAZEPAM [Concomitant]
     Indication: DEPRESSION
     Route: 048
     Dates: start: 20061201

REACTIONS (8)
  - DIARRHOEA [None]
  - DUODENAL ULCER [None]
  - DUODENITIS [None]
  - GASTROINTESTINAL ULCER [None]
  - MALAISE [None]
  - OESOPHAGITIS ULCERATIVE [None]
  - RECTAL HAEMORRHAGE [None]
  - SYNCOPE [None]
